FAERS Safety Report 13151657 (Version 1)
Quarter: 2017Q1

REPORT INFORMATION
  Report Type: Report from Study
  Country: CA (occurrence: CA)
  Receive Date: 20170125
  Receipt Date: 20170125
  Transmission Date: 20170428
  Serious: No
  Sender: FDA-Public Use
  Company Number: CA-JNJFOC-20170120730

PATIENT
  Sex: Female
  Weight: 62.6 kg

DRUGS (2)
  1. ENOXION [Concomitant]
  2. STELARA [Suspect]
     Active Substance: USTEKINUMAB
     Indication: PSORIASIS
     Route: 058
     Dates: start: 20161207

REACTIONS (1)
  - Psoriasis [Not Recovered/Not Resolved]
